FAERS Safety Report 9571373 (Version 2)
Quarter: 2013Q4

REPORT INFORMATION
  Report Type: Spontaneous
  Country: PL (occurrence: PL)
  Receive Date: 20131001
  Receipt Date: 20131008
  Transmission Date: 20140711
  Serious: Yes (Other)
  Sender: FDA-Public Use
  Company Number: PL-RANBAXY-2013RR-73649

PATIENT
  Age: 62 Year
  Sex: Female

DRUGS (6)
  1. DONEPEZIL [Suspect]
     Indication: DEMENTIA ALZHEIMER^S TYPE
     Dosage: 5MG DAILY
     Route: 065
  2. DONEPEZIL [Suspect]
     Indication: DEMENTIA ALZHEIMER^S TYPE
     Dosage: 10 MG, QD
     Route: 065
  3. ASPIRIN [Concomitant]
     Indication: INFECTION
     Dosage: 1500 MG, UNK
     Route: 065
  4. VITAMIN C [Concomitant]
     Indication: INFECTION
     Dosage: UNK
     Route: 065
  5. PARACETAMOL [Concomitant]
     Indication: NASOPHARYNGITIS
     Dosage: UNK
     Route: 065
  6. ASPIRIN [Concomitant]
     Indication: NASOPHARYNGITIS
     Dosage: UNK
     Route: 065

REACTIONS (4)
  - Delirium [Recovered/Resolved]
  - Abdominal pain upper [Recovered/Resolved]
  - Decreased appetite [Recovered/Resolved]
  - Withdrawal syndrome [Recovered/Resolved]
